FAERS Safety Report 6036434-1 (Version None)
Quarter: 2009Q1

REPORT INFORMATION
  Report Type: 
  Country: None (occurrence: None)
  Receive Date: 20090112
  Receipt Date: 20081231
  Transmission Date: 20090719
  Serious: Yes (Other)
  Sender: FDA-Public Use
  Company Number: 2008AP003036

PATIENT
  Age: 82 Year
  Sex: Male
  Weight: 53.0709 kg

DRUGS (17)
  1. TRAMADOL HYDROCHLORIDE [Suspect]
     Indication: PAIN
     Dosage: 50 MG;100MG; TID, QD, PO
     Route: 048
     Dates: end: 20081101
  2. TRAMADOL HYDROCHLORIDE [Suspect]
     Indication: SPINAL COLUMN STENOSIS
     Dosage: 50 MG;100MG; TID, QD, PO
     Route: 048
     Dates: end: 20081101
  3. TRAMADOL HYDROCHLORIDE [Suspect]
     Indication: PAIN
     Dosage: 50 MG;100MG; TID, QD, PO
     Route: 048
     Dates: start: 20080101
  4. TRAMADOL HYDROCHLORIDE [Suspect]
     Indication: SPINAL COLUMN STENOSIS
     Dosage: 50 MG;100MG; TID, QD, PO
     Route: 048
     Dates: start: 20080101
  5. TRAMADOL HYDROCHLORIDE [Suspect]
     Indication: PAIN
     Dosage: 50 MG;100MG; TID, QD, PO
     Route: 048
     Dates: start: 20080101
  6. TRAMADOL HYDROCHLORIDE [Suspect]
     Indication: SPINAL COLUMN STENOSIS
     Dosage: 50 MG;100MG; TID, QD, PO
     Route: 048
     Dates: start: 20080101
  7. TRAMADOL HYDROCHLORIDE [Suspect]
     Indication: PAIN
     Dosage: 50 MG;100MG; TID, QD, PO
     Route: 048
     Dates: start: 20080612
  8. TRAMADOL HYDROCHLORIDE [Suspect]
     Indication: SPINAL COLUMN STENOSIS
     Dosage: 50 MG;100MG; TID, QD, PO
     Route: 048
     Dates: start: 20080612
  9. CYMBALTA [Suspect]
     Dates: start: 20080401, end: 20080901
  10. TRAMADOL HYDROCHLORIDE [Suspect]
     Indication: PAIN
     Dosage: 50 MG; TID; PO
     Route: 048
     Dates: start: 20080214
  11. ACETYLSALICYLIC ACID SRT [Concomitant]
  12. NIFEDIPINE [Concomitant]
  13. ATORVASTATIN CALCIUM [Concomitant]
  14. CALCIUM [Concomitant]
  15. CENTRUM [Concomitant]
  16. CELECOXIB [Concomitant]
  17. METOPROLOL TARTRATE [Concomitant]

REACTIONS (4)
  - HALLUCINATION, AUDITORY [None]
  - HEARING IMPAIRED [None]
  - INADEQUATE ANALGESIA [None]
  - THERAPEUTIC RESPONSE DECREASED [None]
